FAERS Safety Report 17274291 (Version 3)
Quarter: 2020Q1

REPORT INFORMATION
  Report Type: Spontaneous
  Country: CA (occurrence: CA)
  Receive Date: 20200115
  Receipt Date: 20200311
  Transmission Date: 20200409
  Serious: Yes (Other)
  Sender: FDA-Public Use
  Company Number: CA-PFIZER INC-2020011150

PATIENT
  Age: 41 Year
  Sex: Female
  Weight: 50.8 kg

DRUGS (5)
  1. LIBTAYO [Concomitant]
     Active Substance: CEMIPLIMAB-RWLC
     Indication: SKIN CANCER
     Dosage: 300 MG, EVERY 3 WEEKS
     Route: 042
     Dates: start: 20200108
  2. DOSTINEX [Suspect]
     Active Substance: CABERGOLINE
     Indication: BLOOD PROLACTIN INCREASED
     Dosage: UNK UNK, 2X/WEEK (DOSE REPORTED AS BETWEEN 1 MG AND 1.5MG)
     Route: 048
     Dates: start: 200904
  3. DOSTINEX [Suspect]
     Active Substance: CABERGOLINE
     Indication: HYPERPROLACTINAEMIA
     Dosage: 1.5 MG, 2X/WEEK
     Route: 048
     Dates: start: 20090610
  4. INDAPAMIDE. [Concomitant]
     Active Substance: INDAPAMIDE
     Indication: OEDEMA
     Dosage: 1.25 MG, DAILY
     Route: 048
  5. VITAMIN D3 [Concomitant]
     Active Substance: CHOLECALCIFEROL
     Dosage: UNK, DAILY (3000 UIS DAILY)

REACTIONS (8)
  - Renal failure [Not Recovered/Not Resolved]
  - Hypertension [Not Recovered/Not Resolved]
  - Vitamin D decreased [Unknown]
  - Hyperparathyroidism primary [Not Recovered/Not Resolved]
  - Impaired fasting glucose [Unknown]
  - Squamous cell carcinoma of skin [Unknown]
  - Hypercalcaemia [Not Recovered/Not Resolved]
  - Gastrooesophageal reflux disease [Unknown]

NARRATIVE: CASE EVENT DATE: 2009
